FAERS Safety Report 8367758-0 (Version None)
Quarter: 2012Q2

REPORT INFORMATION
  Report Type: 
  Country: None (occurrence: None)
  Receive Date: 20120517
  Receipt Date: 20120508
  Transmission Date: 20120825
  Serious: Yes (Other)
  Sender: FDA-Public Use
  Company Number: DE-GLAXOSMITHKLINE-D0075520A

PATIENT
  Sex: Female
  Weight: 75 kg

DRUGS (4)
  1. WINE [Suspect]
     Route: 048
     Dates: start: 20120508, end: 20120508
  2. DOLORMIN EXTRA [Suspect]
     Dosage: 400MG SEE DOSAGE TEXT
     Route: 048
     Dates: start: 20120508, end: 20120508
  3. NARATRIPTAN [Suspect]
     Dosage: 2.5MG SEE DOSAGE TEXT
     Route: 048
     Dates: start: 20120508, end: 20120508
  4. SPIRITS [Suspect]
     Route: 048
     Dates: start: 20120508, end: 20120508

REACTIONS (2)
  - INTENTIONAL OVERDOSE [None]
  - SOMNOLENCE [None]
